FAERS Safety Report 5832664-X (Version None)
Quarter: 2008Q3

REPORT INFORMATION
  Report Type: 
  Country: None (occurrence: None)
  Receive Date: 20080804
  Receipt Date: 20080729
  Transmission Date: 20090109
  Serious: Yes (Death, Hospitalization)
  Sender: FDA-Public Use
  Company Number: PHBS2008IT05235

PATIENT
  Age: 62 Year
  Sex: Female

DRUGS (1)
  1. BACLOFEN [Suspect]
     Indication: MYELITIS
     Dosage: 132 U/DAY
     Route: 037

REACTIONS (8)
  - ABDOMINAL DISTENSION [None]
  - ABDOMINAL PAIN UPPER [None]
  - GASTROINTESTINAL MOTILITY DISORDER [None]
  - ILEUS PARALYTIC [None]
  - POST PROCEDURAL COMPLICATION [None]
  - SMALL INTESTINAL OBSTRUCTION [None]
  - SURGERY [None]
  - VOMITING [None]
